FAERS Safety Report 18659560 (Version 2)
Quarter: 2021Q2

REPORT INFORMATION
  Report Type: Spontaneous
  Country: DE (occurrence: DE)
  Receive Date: 20201224
  Receipt Date: 20210422
  Transmission Date: 20210717
  Serious: Yes (Congenital Anomaly)
  Sender: FDA-Public Use
  Company Number: DE-ROCHE-2738622

PATIENT
  Sex: Female

DRUGS (2)
  1. OCREVUS [Suspect]
     Active Substance: OCRELIZUMAB
     Dosage: LAST DOSE PRIOR TO CONCEPTION TO HER MOTHER: 15/AUG/2019
     Route: 050
     Dates: start: 20190815
  2. OCREVUS [Suspect]
     Active Substance: OCRELIZUMAB
     Indication: PRODUCT USED FOR UNKNOWN INDICATION
     Route: 050
     Dates: start: 20180214

REACTIONS (4)
  - Congenital heart valve incompetence [Not Recovered/Not Resolved]
  - Foetal exposure during pregnancy [Unknown]
  - Skull malformation [Unknown]
  - Congenital renal disorder [Not Recovered/Not Resolved]
